FAERS Safety Report 8829860 (Version 1)
Quarter: 2012Q4

REPORT INFORMATION
  Report Type: Spontaneous
  Country: US (occurrence: None)
  Receive Date: 20121004
  Receipt Date: 20121004
  Transmission Date: 20130627
  Serious: Yes (Life-Threatening, Other)
  Sender: FDA-Public Use
  Company Number: 2012P1059734

PATIENT
  Age: 41 Year
  Sex: Female
  Weight: 165 kg

DRUGS (18)
  1. FENTANYL PATCH [Suspect]
     Indication: CHRONIC PAIN
     Route: 062
     Dates: start: 20120921
  2. FENTANYL PATCH 25 MCG/HR (NO PREF. NAME) [Suspect]
     Indication: CHRONIC PAIN
     Dates: start: 2011
  3. FENTANYL PATCH [Suspect]
     Indication: CHRONIC PAIN
  4. FENTANYL PATCH [Suspect]
     Indication: CHRONIC PAIN
  5. CYMBALTA [Concomitant]
  6. PERCOCET [Concomitant]
  7. BISACODYL [Concomitant]
  8. SENOKOT-S [Concomitant]
  9. BACLOFEN [Concomitant]
  10. HYDROXYZINE [Concomitant]
  11. CLINDAMYCIN [Concomitant]
  12. CORTICOSTEROID CREAM [Concomitant]
  13. I-METHOFOLIATE [Concomitant]
  14. PRENATAL VITAMINS [Concomitant]
  15. MILK THISTLE [Concomitant]
  16. HIGH POTENCY [Concomitant]
  17. VITAMIN C [Concomitant]
  18. ALBUTEROL INHALER [Concomitant]

REACTIONS (12)
  - Pain [None]
  - Drug ineffective [None]
  - Systemic lupus erythematosus [None]
  - Fibromyalgia [None]
  - Hepatitis C [None]
  - Hepatic failure [None]
  - Renal failure [None]
  - Menopause [None]
  - Urinary retention [None]
  - Uterine disorder [None]
  - Back pain [None]
  - Terminal state [None]
